FAERS Safety Report 14986158 (Version 1)
Quarter: 2018Q2

REPORT INFORMATION
  Report Type: Not Available
  Country: US (occurrence: US)
  Receive Date: 20180607
  Receipt Date: 20180607
  Transmission Date: 20180711
  Serious: No
  Sender: FDA-Public Use
  Company Number: US-NEUROCRINE BIOSCIENCES INC.-2018NBI01577

PATIENT
  Sex: Male

DRUGS (6)
  1. INGREZZA [Suspect]
     Active Substance: VALBENAZINE
     Indication: TARDIVE DYSKINESIA
     Route: 048
     Dates: start: 20171015, end: 20180510
  2. LORAZEPAM. [Concomitant]
     Active Substance: LORAZEPAM
  3. SIMVASTATIN. [Concomitant]
     Active Substance: SIMVASTATIN
  4. QUETIAPINE. [Concomitant]
     Active Substance: QUETIAPINE
  5. INVEGA [Concomitant]
     Active Substance: PALIPERIDONE
  6. RISPERDAL [Concomitant]
     Active Substance: RISPERIDONE

REACTIONS (1)
  - Irritability [Unknown]
